FAERS Safety Report 6705763-8 (Version None)
Quarter: 2010Q2

REPORT INFORMATION
  Report Type: 
  Country: None (occurrence: None)
  Receive Date: 20100503
  Receipt Date: 20100421
  Transmission Date: 20101027
  Serious: Yes (Other)
  Sender: FDA-Public Use
  Company Number: SE-JNJFOC-20100406260

PATIENT
  Age: 29 Year
  Sex: Female

DRUGS (6)
  1. REMICADE [Suspect]
     Indication: COLITIS ULCERATIVE
     Route: 042
  2. REMICADE [Suspect]
     Dosage: 2ND INFUSION
     Route: 042
  3. REMICADE [Suspect]
     Route: 042
  4. PREDNISOLONE [Concomitant]
     Indication: PROPHYLAXIS
  5. TAVEGYL [Concomitant]
     Indication: PROPHYLAXIS
  6. ALVEDON [Concomitant]
     Indication: PROPHYLAXIS

REACTIONS (5)
  - ANXIETY [None]
  - CHEST DISCOMFORT [None]
  - DRUG EXPOSURE DURING PREGNANCY [None]
  - INFUSION RELATED REACTION [None]
  - PALPITATIONS [None]
